FAERS Safety Report 9936894 (Version 1)
Quarter: 2014Q1

REPORT INFORMATION
  Report Type: Spontaneous
  Country: US (occurrence: None)
  Receive Date: 20140115
  Receipt Date: 20140115
  Transmission Date: 20141002
  Serious: Yes (Hospitalization)
  Sender: FDA-Public Use
  Company Number: 2013US002554

PATIENT
  Age: 53 Year
  Sex: Female
  Weight: 105 kg

DRUGS (6)
  1. ICLUSIG (PONATINIB) TABLET, 45MG [Suspect]
     Indication: CHRONIC MYELOID LEUKAEMIA
     Route: 048
     Dates: start: 20130819, end: 2013
  2. SYNTHROID (LEVOTHYROXINE SODIUM) [Concomitant]
  3. VESICARE (SOLIFENIACIN SUCCINATE) [Concomitant]
  4. FUROSEMIDE (FUROSEMIDE) [Concomitant]
  5. SINGULAIR (MONTELUKAST SODIUM) TABLET [Concomitant]
  6. OMEPRAZOLE (OMEPRAZOLE) [Concomitant]

REACTIONS (2)
  - White blood cell count decreased [None]
  - Pyrexia [None]
